FAERS Safety Report 6589858-8 (Version None)
Quarter: 2010Q1

REPORT INFORMATION
  Report Type: 
  Country: None (occurrence: None)
  Receive Date: 20100219
  Receipt Date: 20100212
  Transmission Date: 20100710
  Serious: Yes (Hospitalization, Other)
  Sender: FDA-Public Use
  Company Number: JP-JNJFOC-20100202587

PATIENT
  Age: 74 Year
  Sex: Female

DRUGS (1)
  1. ITRIZOLE [Suspect]
     Indication: TINEA PEDIS
     Route: 048

REACTIONS (1)
  - FACTOR VIII DEFICIENCY [None]
